FAERS Safety Report 7956362-1 (Version None)
Quarter: 2011Q4

REPORT INFORMATION
  Report Type: 
  Country: None (occurrence: None)
  Receive Date: 20111205
  Receipt Date: 20111201
  Transmission Date: 20120403
  Serious: Yes (Other)
  Sender: FDA-Public Use
  Company Number: SE-PFIZER INC-2011252647

PATIENT
  Age: 67 Year
  Sex: Female

DRUGS (3)
  1. ALPRAZOLAM [Suspect]
     Dosage: UNK
  2. OXAZEPAM [Suspect]
     Dosage: UNK
  3. DIAZEPAM [Suspect]
     Indication: PROPHYLAXIS
     Dosage: UNK

REACTIONS (22)
  - EMOTIONAL DISORDER [None]
  - VOMITING [None]
  - GASTROOESOPHAGEAL REFLUX DISEASE [None]
  - TOOTHACHE [None]
  - VISUAL IMPAIRMENT [None]
  - PAIN [None]
  - ABASIA [None]
  - ARTHRALGIA [None]
  - AMNESIA [None]
  - MYALGIA [None]
  - BEDRIDDEN [None]
  - ABSCESS [None]
  - NAUSEA [None]
  - DISABILITY [None]
  - NERVOUS SYSTEM DISORDER [None]
  - ANXIETY [None]
  - HERPES VIRUS INFECTION [None]
  - PRURITUS GENERALISED [None]
  - SUICIDAL IDEATION [None]
  - MALAISE [None]
  - DIZZINESS [None]
  - FEAR [None]
